FAERS Safety Report 6422865-4 (Version None)
Quarter: 2009Q4

REPORT INFORMATION
  Report Type: 
  Country: None (occurrence: None)
  Receive Date: 20091102
  Receipt Date: 20091020
  Transmission Date: 20100525
  Serious: Yes (Death, Life-Threatening, Hospitalization)
  Sender: FDA-Public Use
  Company Number: IR-ROCHE-664299

PATIENT
  Sex: Female

DRUGS (1)
  1. CELLCEPT [Suspect]
     Indication: MULTIPLE SCLEROSIS
     Dosage: INDICATION: MULTIPLE SCLEROSIS DISEASE.
     Route: 048
     Dates: start: 20090401

REACTIONS (4)
  - DEATH [None]
  - ECCHYMOSIS [None]
  - HAEMATURIA [None]
  - MOUTH HAEMORRHAGE [None]
